FAERS Safety Report 18709850 (Version 1)
Quarter: 2021Q1

REPORT INFORMATION
  Report Type: Spontaneous
  Country: US (occurrence: US)
  Receive Date: 20210107
  Receipt Date: 20210107
  Transmission Date: 20210419
  Serious: Yes (Other)
  Sender: FDA-Public Use
  Company Number: US-DRREDDYS-USA/USA/20/0130546

PATIENT
  Age: 15 Year
  Sex: Female

DRUGS (1)
  1. ZENATANE [Suspect]
     Active Substance: ISOTRETINOIN
     Indication: PRODUCT USED FOR UNKNOWN INDICATION
     Dosage: RMA ISSUE DATE: 8/7/2020 8:59:13 AM, 9/6/2020 2:15:24 PM, 10/7/2020 5:00:59 AM,11/7/2020 1:47:32 PM,
     Route: 048

REACTIONS (1)
  - Suicidal ideation [Unknown]
